FAERS Safety Report 9104129 (Version 2)
Quarter: 2013Q1

REPORT INFORMATION
  Report Type: Spontaneous
  Country: JP (occurrence: JP)
  Receive Date: 20130219
  Receipt Date: 20130305
  Transmission Date: 20140127
  Serious: Yes (Other)
  Sender: FDA-Public Use
  Company Number: JP-ASTRAZENECA-2013SE10755

PATIENT
  Age: 31 Year
  Sex: Male

DRUGS (19)
  1. SEROQUEL [Suspect]
     Route: 048
  2. GASTER [Suspect]
     Route: 042
  3. FLUNITRAZEPAM [Suspect]
     Indication: EPILEPSY
     Route: 048
  4. FLUNITRAZEPAM [Suspect]
     Indication: EPILEPSY
     Route: 048
  5. FLUNITRAZEPAM [Suspect]
     Indication: EPILEPSY
     Route: 048
  6. DIAZEPAM [Suspect]
     Indication: EPILEPSY
     Route: 048
  7. DIAZEPAM [Suspect]
     Indication: EPILEPSY
     Route: 048
  8. DIAZEPAM [Suspect]
     Indication: EPILEPSY
     Route: 048
  9. DIAZEPAM [Suspect]
     Indication: EPILEPSY
     Route: 048
  10. SULBACATAM-AMPICILLIN [Suspect]
     Indication: PNEUMONIA ASPIRATION
     Dosage: 3 GR/D, 1500-2500 ML UNTIL THE 4TH HOSPITAL DAY
     Route: 041
  11. LAMICTAL [Suspect]
     Route: 048
  12. LAMICTAL [Suspect]
     Route: 048
  13. NITRAZEPAM [Suspect]
     Indication: EPILEPSY
     Route: 048
  14. NITRAZEPAM [Suspect]
     Indication: EPILEPSY
     Route: 048
  15. RISPERIDONE [Suspect]
     Route: 048
  16. CHARCOAL ACTIVATED [Concomitant]
  17. CHLORPHENIRAMINE MALEATE [Concomitant]
     Route: 048
  18. OXYGEN [Concomitant]
  19. ZONISAMIDE [Concomitant]
     Indication: EPILEPSY
     Route: 048

REACTIONS (3)
  - Rhabdomyolysis [Recovered/Resolved]
  - Drug eruption [Recovered/Resolved]
  - Off label use [Unknown]
